FAERS Safety Report 16721441 (Version 2)
Quarter: 2019Q4

REPORT INFORMATION
  Report Type: Spontaneous
  Country: US (occurrence: US)
  Receive Date: 20190820
  Receipt Date: 20191022
  Transmission Date: 20200122
  Serious: Yes (Death, Hospitalization, Other)
  Sender: FDA-Public Use
  Company Number: US-PFIZER INC-2019354699

PATIENT
  Age: 89 Year
  Sex: Female
  Weight: 45.35 kg

DRUGS (1)
  1. LYRICA [Suspect]
     Active Substance: PREGABALIN
     Indication: POST HERPETIC NEURALGIA
     Dosage: UNK
     Dates: end: 201908

REACTIONS (1)
  - Death [Fatal]

NARRATIVE: CASE EVENT DATE: 20190809
